FAERS Safety Report 9393695 (Version 1)
Quarter: 2013Q3

REPORT INFORMATION
  Report Type: Spontaneous
  Country: GB (occurrence: None)
  Receive Date: 20130705
  Receipt Date: 20130705
  Transmission Date: 20140515
  Serious: Yes (Hospitalization)
  Sender: FDA-Public Use
  Company Number: IPC201306-000252

PATIENT
  Age: 21 Year
  Sex: Male

DRUGS (1)
  1. PROPRANOLOL HYDROCHLORIDE [Suspect]

REACTIONS (4)
  - Respiratory arrest [None]
  - Convulsion [None]
  - Tachycardia [None]
  - Overdose [None]
